FAERS Safety Report 8056812-9 (Version None)
Quarter: 2012Q1

REPORT INFORMATION
  Report Type: 
  Country: None (occurrence: None)
  Receive Date: 20120119
  Receipt Date: 20120111
  Transmission Date: 20120608
  Serious: Yes (Other)
  Sender: FDA-Public Use
  Company Number: JP-GLAXOSMITHKLINE-B0770891A

PATIENT
  Sex: Male

DRUGS (11)
  1. ASPIRIN [Concomitant]
     Route: 048
  2. LEVOFLOXACIN [Concomitant]
  3. CERNILTON [Concomitant]
  4. TANATRIL [Concomitant]
     Route: 048
  5. DUTASTERIDE [Suspect]
     Indication: BENIGN PROSTATIC HYPERPLASIA
     Dosage: .5MG PER DAY
     Route: 048
     Dates: start: 20111216, end: 20111219
  6. OMEPRAZOLE [Concomitant]
     Route: 065
  7. VOLTAREN [Concomitant]
  8. UROCALUN [Concomitant]
  9. NIFELAT L [Concomitant]
     Route: 048
  10. TICLOPIDINE HCL [Concomitant]
     Route: 048
  11. SCOPOLAMINE [Concomitant]

REACTIONS (1)
  - BLOOD PRESSURE INCREASED [None]
